FAERS Safety Report 5587582-1 (Version None)
Quarter: 2008Q1

REPORT INFORMATION
  Report Type: 
  Country: None (occurrence: None)
  Receive Date: 20080110
  Receipt Date: 20080107
  Transmission Date: 20080703
  Serious: Yes (Other)
  Sender: FDA-Public Use
  Company Number: US-MERCK-0801USA00755

PATIENT

DRUGS (1)
  1. PROSCAR [Suspect]
     Route: 048

REACTIONS (1)
  - BREAST CANCER [None]
